FAERS Safety Report 5271150-5 (Version None)
Quarter: 2007Q1

REPORT INFORMATION
  Report Type: 
  Country: None (occurrence: None)
  Receive Date: 20070321
  Receipt Date: 20070313
  Transmission Date: 20070707
  Serious: Yes (Other)
  Sender: FDA-Public Use
  Company Number: DE-ROCHE-482306

PATIENT
  Age: 71 Year
  Sex: Female

DRUGS (2)
  1. BONVIVA [Suspect]
     Indication: OSTEOPOROSIS
     Dosage: FORM REPORTED AS SYRINGE.
     Route: 042
     Dates: start: 20061201, end: 20061201
  2. BONVIVA [Suspect]
     Route: 048

REACTIONS (4)
  - ANGINA PECTORIS [None]
  - DYSPNOEA [None]
  - MUSCULOSKELETAL PAIN [None]
  - PAIN [None]
